FAERS Safety Report 16045663 (Version 1)
Quarter: 2019Q1

REPORT INFORMATION
  Report Type: Spontaneous
  Country: FR (occurrence: FR)
  Receive Date: 20190307
  Receipt Date: 20190307
  Transmission Date: 20190418
  Serious: Yes (Hospitalization)
  Sender: FDA-Public Use
  Company Number: FR-ACCORD-111529

PATIENT
  Age: 79 Year
  Sex: Male
  Weight: 95 kg

DRUGS (15)
  1. SPECIAFOLDINE [Concomitant]
     Active Substance: FOLIC ACID
  2. KARDEGIC [Concomitant]
     Active Substance: ASPIRIN DL-LYSINE
  3. PARACETAMOL [Concomitant]
     Active Substance: ACETAMINOPHEN
  4. DUPHALAC [Concomitant]
     Active Substance: LACTULOSE
  5. NICORANDIL [Concomitant]
     Active Substance: NICORANDIL
  6. CORVASAL [Concomitant]
  7. LEXOMIL ROCHE [Concomitant]
     Active Substance: BROMAZEPAM
  8. BISOCE [Concomitant]
     Active Substance: BISOPROLOL
  9. EPINITRIL [Concomitant]
     Active Substance: NITROGLYCERIN
  10. STAGID [Suspect]
     Active Substance: METFORMIN PAMOATE
     Indication: TYPE 2 DIABETES MELLITUS
     Dosage: 700 MG, SCORED TABLET
     Route: 048
     Dates: start: 201806, end: 20180903
  11. VOGALENE [Concomitant]
     Active Substance: METOPIMAZINE
  12. LIPANTHYL [Suspect]
     Active Substance: FENOFIBRATE
     Indication: DYSLIPIDAEMIA
     Route: 048
     Dates: start: 201802, end: 20180903
  13. NORSET [Concomitant]
     Active Substance: MIRTAZAPINE
  14. ALLOPURINOL. [Suspect]
     Active Substance: ALLOPURINOL
     Indication: PRODUCT USED FOR UNKNOWN INDICATION
     Route: 048
     Dates: start: 201802, end: 20180903
  15. OGASTORO [Concomitant]
     Active Substance: LANSOPRAZOLE

REACTIONS (1)
  - Pancreatitis acute [Recovering/Resolving]

NARRATIVE: CASE EVENT DATE: 20180903
